FAERS Safety Report 20568253 (Version 1)
Quarter: 2022Q1

REPORT INFORMATION
  Report Type: Spontaneous
  Country: US (occurrence: US)
  Receive Date: 20220308
  Receipt Date: 20220308
  Transmission Date: 20220423
  Serious: Yes (Other)
  Sender: FDA-Public Use
  Company Number: US-MYLANLABS-2022M1017888

PATIENT
  Age: 92 Year
  Sex: Female

DRUGS (1)
  1. BUSPIRONE [Suspect]
     Active Substance: BUSPIRONE HYDROCHLORIDE
     Indication: Adjustment disorder with mixed anxiety and depressed mood
     Dosage: 5 MILLIGRAM, BID
     Route: 065

REACTIONS (4)
  - Dystonia [Recovered/Resolved]
  - Muscle twitching [Recovered/Resolved]
  - Lip haemorrhage [Recovered/Resolved]
  - Tongue haemorrhage [Recovered/Resolved]
